FAERS Safety Report 4425429-7 (Version None)
Quarter: 2004Q3

REPORT INFORMATION
  Report Type: 
  Country: None (occurrence: None)
  Receive Date: 20040719
  Receipt Date: 20030617
  Transmission Date: 20050211
  Serious: Yes (Hospitalization)
  Sender: FDA-Public Use
  Company Number: 174551

PATIENT
  Age: 48 Year
  Sex: Female
  Weight: 106.1417 kg

DRUGS (5)
  1. AVONEX [Suspect]
     Indication: MULTIPLE SCLEROSIS
     Dates: start: 20010101, end: 20021201
  2. OS-CAL [Concomitant]
  3. VITAMIN E [Concomitant]
  4. VITAMINS NOS [Concomitant]
  5. TIAZAC [Concomitant]

REACTIONS (5)
  - BLOOD CHOLESTEROL INCREASED [None]
  - CONDITION AGGRAVATED [None]
  - HYPERTENSION [None]
  - MULTIPLE SCLEROSIS RELAPSE [None]
  - UPPER RESPIRATORY TRACT INFECTION [None]
